FAERS Safety Report 8171667-X (Version None)
Quarter: 2012Q1

REPORT INFORMATION
  Report Type: 
  Country: None (occurrence: None)
  Receive Date: 20120113
  Receipt Date: 20111007
  Transmission Date: 20120608
  Serious: No
  Sender: FDA-Public Use
  Company Number: PHEH2011US03027

PATIENT
  Age: 48 Year
  Sex: Female

DRUGS (1)
  1. ILARIS [Suspect]
     Dosage: 180 MG, FOR EVERY 8 WEEKS, SUBCUTANEOUS
     Route: 058

REACTIONS (2)
  - NASOPHARYNGITIS [None]
  - DRUG INEFFECTIVE [None]
